FAERS Safety Report 13626847 (Version 1)
Quarter: 2017Q2

REPORT INFORMATION
  Report Type: Spontaneous
  Country: US (occurrence: US)
  Receive Date: 20170607
  Receipt Date: 20170607
  Transmission Date: 20170830
  Serious: Yes (Other)
  Sender: FDA-Public Use
  Company Number: None

PATIENT
  Age: 37 Year
  Sex: Female
  Weight: 70.65 kg

DRUGS (2)
  1. COPPERTONE SPF NOS [Suspect]
     Active Substance: AVOBENZONE\HOMOSALATE\OCTISALATE\OCTOCRYLENE\OXYBENZONE
     Indication: PROPHYLAXIS AGAINST SOLAR RADIATION
     Dosage: QUANTITY  OTHER  1 SPRAY(S)
     Route: 061
     Dates: start: 20170527, end: 20170527
  2. BIOTIN [Concomitant]
     Active Substance: BIOTIN

REACTIONS (3)
  - Sensory disturbance [None]
  - Skin discolouration [None]
  - Chemical burn [None]

NARRATIVE: CASE EVENT DATE: 20170527
